FAERS Safety Report 8657879 (Version 3)
Quarter: 2012Q4

REPORT INFORMATION
  Report Type: 
  Country: US (occurrence: US)
  Receive Date: 20120710
  Receipt Date: 20120914
  Transmission Date: 20130627
  Serious: No
  Sender: FDA-Public Use
  Company Number: US-PFIZER INC-2012160825

PATIENT
  Age: 12 Year
  Sex: Female
  Weight: 52.15 kg

DRUGS (3)
  1. ADVIL [Suspect]
     Indication: MEDICAL DEVICE COMPLICATION
     Dosage: 2 x 200 mg capsules, daily
     Route: 048
     Dates: start: 20120702, end: 20120702
  2. BENADRYL [Suspect]
     Indication: RASH GENERALISED
     Dosage: 50 mg, UNK
     Dates: start: 20120702
  3. BENADRYL [Suspect]
     Indication: AURICULAR SWELLING

REACTIONS (3)
  - Urticaria [Recovered/Resolved]
  - Auricular swelling [Recovered/Resolved]
  - Fatigue [Unknown]
